FAERS Safety Report 15944634 (Version 1)
Quarter: 2019Q1

REPORT INFORMATION
  Report Type: Spontaneous
  Country: US (occurrence: US)
  Receive Date: 20190211
  Receipt Date: 20190211
  Transmission Date: 20190417
  Serious: Yes (Death, Other)
  Sender: FDA-Public Use
  Company Number: None

PATIENT
  Age: 64 Year
  Sex: Male
  Weight: 109.8 kg

DRUGS (4)
  1. PHENERGAN [Suspect]
     Active Substance: PROMETHAZINE HYDROCHLORIDE
     Indication: NAUSEA
     Dosage: ?          QUANTITY:.5 ML;?
     Route: 042
     Dates: start: 20180508, end: 20180508
  2. DILAUDID [Suspect]
     Active Substance: HYDROMORPHONE HYDROCHLORIDE
     Indication: PAIN
     Dosage: ?          QUANTITY:1 ML;OTHER FREQUENCY:2 HOURS; INTRAVENOUS?
     Route: 042
     Dates: start: 20180508, end: 20180508
  3. MEDICATION FOR HAYFEVER [Concomitant]
  4. MEDICATION FOR HIGH BLOOD PRESSURE [Concomitant]
     Active Substance: UNSPECIFIED INGREDIENT

REACTIONS (3)
  - Loss of consciousness [None]
  - Drug hypersensitivity [None]
  - Respiratory failure [None]

NARRATIVE: CASE EVENT DATE: 20180508
